FAERS Safety Report 20174868 (Version 1)
Quarter: 2021Q4

REPORT INFORMATION
  Report Type: Spontaneous
  Country: US (occurrence: None)
  Receive Date: 20211209
  Receipt Date: 20211209
  Transmission Date: 20220303
  Serious: Yes (Other)
  Sender: FDA-Public Use
  Company Number: None

PATIENT
  Age: 68 Year
  Sex: Female
  Weight: 89 kg

DRUGS (2)
  1. BAMLANIVIMAB [Suspect]
     Active Substance: BAMLANIVIMAB
     Indication: COVID-19
     Route: 042
  2. ETESEVIMAB [Suspect]
     Active Substance: ETESEVIMAB
     Indication: COVID-19
     Route: 042
     Dates: start: 20211206, end: 20211206

REACTIONS (10)
  - Rhinorrhoea [None]
  - Headache [None]
  - Nausea [None]
  - Chest pain [None]
  - Pain in extremity [None]
  - Abdominal pain [None]
  - Groin pain [None]
  - Blood pressure systolic increased [None]
  - Heart rate irregular [None]
  - Infusion related reaction [None]

NARRATIVE: CASE EVENT DATE: 20211206
